FAERS Safety Report 8368230-4 (Version None)
Quarter: 2012Q2

REPORT INFORMATION
  Report Type: 
  Country: None (occurrence: None)
  Receive Date: 20120517
  Receipt Date: 20120515
  Transmission Date: 20120825
  Serious: Yes (Other)
  Sender: FDA-Public Use
  Company Number: DE-MERCK-1205DEU00051

PATIENT
  Sex: Male

DRUGS (1)
  1. PROPECIA [Suspect]
     Indication: ALOPECIA
     Route: 048
     Dates: start: 20070101

REACTIONS (2)
  - SOFT TISSUE NECROSIS [None]
  - TENDON RUPTURE [None]
